FAERS Safety Report 6707377-2 (Version None)
Quarter: 2010Q2

REPORT INFORMATION
  Report Type: 
  Country: None (occurrence: None)
  Receive Date: 20100429
  Receipt Date: 20100422
  Transmission Date: 20101027
  Serious: Yes (Hospitalization)
  Sender: FDA-Public Use
  Company Number: WAES 1004USA03591

PATIENT
  Age: 66 Year
  Sex: Male
  Weight: 98.8842 kg

DRUGS (12)
  1. DECADRON [Suspect]
     Indication: PROSTATE CANCER
     Dosage: 18 MG/PO
     Route: 048
     Dates: start: 20100204
  2. PLAVIX [Suspect]
     Dosage: PO
     Route: 048
  3. DOCETAXEL [Suspect]
     Dosage: 160 MG/IV
     Route: 042
     Dates: start: 20100204, end: 20100204
  4. BLINDED THERAPY UNK [Suspect]
     Indication: PROSTATE CANCER
     Dosage: PO
     Route: 048
     Dates: start: 20100204, end: 20100215
  5. ASPIRIN TAB [Suspect]
     Dosage: PO
     Route: 048
  6. CARVEDILOL [Suspect]
  7. LISINOPRIL [Suspect]
     Dosage: PO
     Route: 048
  8. NAPROXEN [Suspect]
  9. OMEPRAZOLE [Suspect]
     Dosage: PO
     Route: 048
  10. ACETAMINOPHEN W/ PROPOXYPHENE HCL [Concomitant]
  11. FLOMAX (MORNIFLUMATE) [Concomitant]
  12. PREDNISONE [Concomitant]

REACTIONS (4)
  - GASTROENTERITIS [None]
  - GASTROINTESTINAL HAEMORRHAGE [None]
  - HYPOGLYCAEMIA [None]
  - HYPOTENSION [None]
